FAERS Safety Report 11135757 (Version 1)
Quarter: 2015Q2

REPORT INFORMATION
  Report Type: Report from Study
  Country: DE (occurrence: DE)
  Receive Date: 20150526
  Receipt Date: 20150526
  Transmission Date: 20150821
  Serious: Yes (Hospitalization)
  Sender: FDA-Public Use
  Company Number: DE-SA-2014SA042557

PATIENT
  Sex: Female
  Weight: 55 kg

DRUGS (9)
  1. LEMTRADA [Suspect]
     Active Substance: ALEMTUZUMAB
     Indication: MULTIPLE SCLEROSIS
     Route: 041
     Dates: start: 20140324, end: 20140327
  2. LYRICA [Concomitant]
     Active Substance: PREGABALIN
     Indication: NEUROPATHY PERIPHERAL
     Dosage: 150-0-300 MG
  3. FAMPYRA [Concomitant]
     Active Substance: DALFAMPRIDINE
     Indication: MOVEMENT DISORDER
     Dosage: 2X10 MG
     Route: 048
  4. FORTECORTIN [Concomitant]
     Active Substance: DEXAMETHASONE
     Dates: start: 201403
  5. ARTANE [Concomitant]
     Active Substance: TRIHEXYPHENIDYL HYDROCHLORIDE
     Indication: MOVEMENT DISORDER
     Dosage: 1-1-2 MG
     Route: 048
  6. CITALOPRAM [Concomitant]
     Active Substance: CITALOPRAM HYDROBROMIDE
     Indication: NEUROPATHY PERIPHERAL
     Route: 048
  7. FENISTIL [Concomitant]
     Active Substance: DIMETHINDENE
     Dates: start: 201403
  8. BACLOFEN. [Concomitant]
     Active Substance: BACLOFEN
     Indication: MOVEMENT DISORDER
     Dosage: 3X5 MG
     Route: 048
  9. URBASON [Concomitant]
     Active Substance: METHYLPREDNISOLONE
     Dates: start: 20140324

REACTIONS (6)
  - Seizure [Unknown]
  - Post lumbar puncture syndrome [Unknown]
  - Lumbar puncture [Unknown]
  - Wheelchair user [Unknown]
  - Fall [Unknown]
  - Lymphopenia [Recovering/Resolving]

NARRATIVE: CASE EVENT DATE: 20140407
